FAERS Safety Report 24410841 (Version 1)
Quarter: 2024Q4

REPORT INFORMATION
  Report Type: Spontaneous
  Country: US (occurrence: US)
  Receive Date: 20241008
  Receipt Date: 20241008
  Transmission Date: 20250115
  Serious: Yes (Hospitalization)
  Sender: MANKIND PHARMA
  Company Number: US-MankindUS-000262

PATIENT
  Age: 4 Month
  Sex: Male
  Weight: 5.1 kg

DRUGS (6)
  1. MIDODRINE HYDROCHLORIDE [Suspect]
     Active Substance: MIDODRINE HYDROCHLORIDE
     Indication: Blood pressure systolic decreased
     Dosage: 0.49MG/KG
  2. PROPRANOLOL [Concomitant]
     Active Substance: PROPRANOLOL HYDROCHLORIDE
     Dosage: 0.5MG/KG, TWICE DAILY DURING HOSPITAL DAYS 12-15
  3. METOPROLOL [Concomitant]
     Active Substance: METOPROLOL
     Dosage: 0.06 MG/KG, TWICE DAILY ON DAY 15
  4. METOPROLOL [Concomitant]
     Active Substance: METOPROLOL
     Dosage: 0.1 MG/KG, TWICE DAILY ON DAY 17 AND 18
  5. METOPROLOL [Concomitant]
     Active Substance: METOPROLOL
     Dosage: 0.12 MG/KG, TWICE DAILY ON DAY 18
  6. MIDODRINE HYDROCHLORIDE [Suspect]
     Active Substance: MIDODRINE HYDROCHLORIDE
     Indication: Blood pressure systolic decreased
     Dosage: 0.25MG/KG, HALF TABLET, EVERY 8 HOURS

REACTIONS (1)
  - Blood pressure systolic increased [Recovering/Resolving]
